FAERS Safety Report 6519310-7 (Version None)
Quarter: 2009Q4

REPORT INFORMATION
  Report Type: 
  Country: None (occurrence: None)
  Receive Date: 20091224
  Receipt Date: 20091224
  Transmission Date: 20100525
  Serious: Yes (Hospitalization)
  Sender: FDA-Public Use
  Company Number: None

PATIENT
  Sex: Male
  Weight: 82 kg

DRUGS (3)
  1. CARBOPLATIN [Suspect]
     Dosage: 1524 MG
  2. ERBITUX [Suspect]
     Dosage: 3670 MG
  3. PACLITAXEL [Suspect]
     Dosage: 522 MG

REACTIONS (5)
  - DECREASED APPETITE [None]
  - DEHYDRATION [None]
  - DIARRHOEA [None]
  - DYSPNOEA [None]
  - RADIATION OESOPHAGITIS [None]
